FAERS Safety Report 23056301 (Version 2)
Quarter: 2023Q4

REPORT INFORMATION
  Report Type: Report from Study
  Country: GB (occurrence: GB)
  Receive Date: 20231011
  Receipt Date: 20231030
  Transmission Date: 20240110
  Serious: Yes (Other)
  Sender: FDA-Public Use
  Company Number: GB-002147023-NVSC2023GB188464

PATIENT
  Sex: Female

DRUGS (1)
  1. KISQALI [Suspect]
     Active Substance: RIBOCICLIB
     Indication: Product used for unknown indication
     Dosage: UNK
     Route: 065

REACTIONS (5)
  - Electrocardiogram repolarisation abnormality [Unknown]
  - Electrocardiogram T wave inversion [Unknown]
  - Electrocardiogram abnormal [Unknown]
  - QRS axis abnormal [Unknown]
  - Mouth ulceration [Unknown]
